FAERS Safety Report 10195472 (Version 1)
Quarter: 2014Q2

REPORT INFORMATION
  Report Type: Spontaneous
  Country: US (occurrence: US)
  Receive Date: 20140526
  Receipt Date: 20140526
  Transmission Date: 20141212
  Serious: No
  Sender: FDA-Public Use
  Company Number: US-BAYER-2014-077705

PATIENT
  Age: 80 Year
  Sex: Female
  Weight: 54.42 kg

DRUGS (4)
  1. ALEVE TABLET [Suspect]
     Indication: BACK PAIN
     Dosage: 1 DF, PRN
     Route: 048
     Dates: start: 201403
  2. CENTRUM [MINERALS NOS,VITAMINS NOS] [Concomitant]
  3. IRON [IRON] [Concomitant]
  4. CALCIUM [CALCIUM] [Concomitant]

REACTIONS (1)
  - Drug ineffective [None]
